FAERS Safety Report 13675861 (Version 1)
Quarter: 2017Q2

REPORT INFORMATION
  Report Type: Spontaneous
  Country: US (occurrence: US)
  Receive Date: 20170620
  Receipt Date: 20170620
  Transmission Date: 20170830
  Serious: Yes (Hospitalization)
  Sender: FDA-Public Use
  Company Number: None

PATIENT
  Age: 24 Year
  Sex: Female
  Weight: 56.25 kg

DRUGS (1)
  1. KLONIPIN [Suspect]
     Active Substance: CLONAZEPAM
     Indication: ANXIETY
     Route: 048

REACTIONS (6)
  - Legal problem [None]
  - Anxiety [None]
  - Insomnia [None]
  - Abnormal dreams [None]
  - Aggression [None]
  - Thinking abnormal [None]

NARRATIVE: CASE EVENT DATE: 20170618
